FAERS Safety Report 20995381 (Version 2)
Quarter: 2023Q4

REPORT INFORMATION
  Report Type: Spontaneous
  Country: US (occurrence: US)
  Receive Date: 20220622
  Receipt Date: 20231109
  Transmission Date: 20240109
  Serious: Yes (Other)
  Sender: FDA-Public Use
  Company Number: US-COOPERSURGICAL, INC.-US-2022CPS002047

PATIENT
  Age: 50 Year
  Sex: Female
  Weight: 58.05 kg

DRUGS (5)
  1. PARAGARD T 380A [Suspect]
     Active Substance: COPPER
     Indication: Contraception
     Dosage: UNK
     Route: 015
     Dates: start: 20100101
  2. CELEXA [Concomitant]
     Active Substance: CITALOPRAM HYDROBROMIDE
     Indication: Anxiety
     Dosage: UNK
     Route: 065
     Dates: start: 200301, end: 201501
  3. CYMBALTA [Concomitant]
     Active Substance: DULOXETINE HYDROCHLORIDE
     Indication: Anxiety
     Dosage: UNK
     Route: 065
     Dates: start: 201501
  4. ALPRAZOLAM [Concomitant]
     Active Substance: ALPRAZOLAM
     Indication: Product used for unknown indication
     Route: 065
  5. VITAMINS [Concomitant]
     Active Substance: VITAMINS
     Indication: Product used for unknown indication
     Route: 065

REACTIONS (19)
  - Uterine polyp [Unknown]
  - Device breakage [Not Recovered/Not Resolved]
  - Foreign body in reproductive tract [Not Recovered/Not Resolved]
  - Complication of device removal [Not Recovered/Not Resolved]
  - Embedded device [Not Recovered/Not Resolved]
  - Blood follicle stimulating hormone increased [Unknown]
  - Reproductive complication associated with device [Unknown]
  - Anxiety [Unknown]
  - Emotional distress [Unknown]
  - Economic problem [Unknown]
  - Depression [Unknown]
  - Dysuria [Not Recovered/Not Resolved]
  - Back pain [Not Recovered/Not Resolved]
  - Abnormal uterine bleeding [Unknown]
  - Abdominal pain [Unknown]
  - Muscle spasms [Not Recovered/Not Resolved]
  - Menstruation irregular [Unknown]
  - Device use issue [Unknown]
  - Pain [Unknown]

NARRATIVE: CASE EVENT DATE: 20200102
